FAERS Safety Report 5411390-5 (Version None)
Quarter: 2007Q3

REPORT INFORMATION
  Report Type: 
  Country: None (occurrence: None)
  Receive Date: 20070810
  Receipt Date: 20070806
  Transmission Date: 20080115
  Serious: Yes (Hospitalization)
  Sender: FDA-Public Use
  Company Number: US-ASTRAZENECA-2007UW18955

PATIENT
  Age: 75 Year
  Sex: Female
  Weight: 81.6 kg

DRUGS (9)
  1. NEXIUM [Suspect]
     Indication: GASTROOESOPHAGEAL REFLUX DISEASE
     Route: 048
     Dates: start: 20010101
  2. AVAPRO [Concomitant]
  3. CENTRUM SILVER [Concomitant]
  4. ASCORBIC ACID [Concomitant]
  5. CALCIUM D [Concomitant]
  6. MACROBID [Concomitant]
  7. HYDROCODONE BITARTRATE [Concomitant]
  8. APAP TAB [Concomitant]
  9. ATIVAN [Concomitant]

REACTIONS (9)
  - BLADDER OPERATION [None]
  - CYSTITIS [None]
  - FAECES DISCOLOURED [None]
  - GALLBLADDER OPERATION [None]
  - HAEMATURIA [None]
  - HERNIA REPAIR [None]
  - INTESTINAL OPERATION [None]
  - RECTAL HAEMORRHAGE [None]
  - VAGINAL HAEMORRHAGE [None]
